FAERS Safety Report 6384928-1 (Version None)
Quarter: 2009Q4

REPORT INFORMATION
  Report Type: 
  Country: None (occurrence: None)
  Receive Date: 20091002
  Receipt Date: 20090706
  Transmission Date: 20100525
  Serious: No
  Sender: FDA-Public Use
  Company Number: A0795493A

PATIENT
  Age: 48 Year
  Sex: Female

DRUGS (4)
  1. REQUIP XL [Suspect]
     Indication: PARKINSON'S DISEASE
     Dosage: 2MG PER DAY
     Route: 048
     Dates: start: 20090625
  2. STALEVO 100 [Concomitant]
  3. VITAMIN B COMPLEX CAP [Concomitant]
  4. KLONOPIN [Concomitant]

REACTIONS (1)
  - NAUSEA [None]
